FAERS Safety Report 24347520 (Version 1)
Quarter: 2024Q3

REPORT INFORMATION
  Report Type: Spontaneous
  Country: US (occurrence: US)
  Receive Date: 20240922
  Receipt Date: 20240922
  Transmission Date: 20241016
  Serious: Yes (Other)
  Sender: DR REDDYS
  Company Number: US-DRL-USA-SPO/USA/24/0013810

PATIENT
  Age: 35 Year
  Sex: Female

DRUGS (11)
  1. CYCLOSPORINE [Suspect]
     Active Substance: CYCLOSPORINE
     Indication: Metastatic cutaneous Crohn^s disease
  2. MERCAPTOPURINE [Suspect]
     Active Substance: MERCAPTOPURINE
     Indication: Metastatic cutaneous Crohn^s disease
  3. ADALIMUMAB [Concomitant]
     Active Substance: ADALIMUMAB
     Indication: Metastatic cutaneous Crohn^s disease
  4. INFLIXIMAB [Concomitant]
     Active Substance: INFLIXIMAB
     Indication: Metastatic cutaneous Crohn^s disease
  5. MESALAMINE [Concomitant]
     Active Substance: MESALAMINE
     Indication: Metastatic cutaneous Crohn^s disease
  6. PREDNISONE [Concomitant]
     Active Substance: PREDNISONE
     Indication: Metastatic cutaneous Crohn^s disease
  7. AZATHIOPRINE [Concomitant]
     Active Substance: AZATHIOPRINE
     Indication: Metastatic cutaneous Crohn^s disease
  8. METHOTREXATE [Concomitant]
     Active Substance: METHOTREXATE
     Indication: Metastatic cutaneous Crohn^s disease
  9. METRONIDAZOLE [Concomitant]
     Active Substance: METRONIDAZOLE
     Indication: Metastatic cutaneous Crohn^s disease
     Route: 048
  10. CLOBETASOL [Concomitant]
     Active Substance: CLOBETASOL
     Indication: Metastatic cutaneous Crohn^s disease
  11. TACROLIMUS [Concomitant]
     Active Substance: TACROLIMUS
     Indication: Metastatic cutaneous Crohn^s disease

REACTIONS (1)
  - Drug ineffective for unapproved indication [Unknown]
